FAERS Safety Report 24721365 (Version 1)
Quarter: 2024Q4

REPORT INFORMATION
  Report Type: Spontaneous
  Country: US (occurrence: US)
  Receive Date: 20241211
  Receipt Date: 20241211
  Transmission Date: 20250114
  Serious: No
  Sender: AMGEN
  Company Number: US-AMGEN-USASP2024240800

PATIENT

DRUGS (2)
  1. MVASI [Suspect]
     Active Substance: BEVACIZUMAB-AWWB
     Indication: Product used for unknown indication
     Dosage: 1400 MILLIGRAM (2 X 100 MG VIAL)
     Route: 065
  2. MVASI [Suspect]
     Active Substance: BEVACIZUMAB-AWWB
     Dosage: 1400 MILLIGRAM (3 X 400 MG VIAL)
     Route: 065

REACTIONS (2)
  - Oropharyngeal pain [Unknown]
  - Nasal congestion [Unknown]
